FAERS Safety Report 9668924 (Version 1)
Quarter: 2013Q4

REPORT INFORMATION
  Report Type: Spontaneous
  Country: US (occurrence: US)
  Receive Date: 20131105
  Receipt Date: 20131105
  Transmission Date: 20140711
  Serious: No
  Sender: FDA-Public Use
  Company Number: US-VERTEX PHARMACEUTICALS INC-2013-010808

PATIENT
  Sex: Female

DRUGS (4)
  1. INCIVEK [Suspect]
     Indication: HEPATITIS C
     Dosage: UNK
     Route: 048
  2. RIBAVIRIN [Suspect]
     Indication: HEPATITIS C
     Dosage: UNK
  3. PEGINTERFERON [Suspect]
     Indication: HEPATITIS C
     Dosage: UNK
  4. PEGINTERFERON [Suspect]
     Dosage: UNK

REACTIONS (4)
  - Hypotension [Unknown]
  - Somnolence [Unknown]
  - Fatigue [Unknown]
  - Haemoglobin decreased [Unknown]
